FAERS Safety Report 6887490-X (Version None)
Quarter: 2010Q3

REPORT INFORMATION
  Report Type: 
  Country: None (occurrence: None)
  Receive Date: 20100730
  Receipt Date: 20100714
  Transmission Date: 20110219
  Serious: Yes (Hospitalization)
  Sender: FDA-Public Use
  Company Number: US-BAYER-201021934NA

PATIENT
  Age: 32 Year
  Sex: Female
  Weight: 102 kg

DRUGS (12)
  1. YASMIN [Suspect]
     Indication: ORAL CONTRACEPTION
     Route: 048
     Dates: start: 20040501, end: 20060101
  2. YASMIN [Suspect]
     Route: 048
     Dates: start: 20060301, end: 20060701
  3. YAZ [Suspect]
     Indication: ORAL CONTRACEPTION
     Route: 048
     Dates: start: 20060301, end: 20060701
  4. YAZ [Suspect]
     Route: 048
     Dates: start: 20040501, end: 20060101
  5. ZITHROMAX [Concomitant]
  6. AMOXICILLIN [Concomitant]
  7. LEVAQUIN [Concomitant]
  8. EXCEDRIN (MIGRAINE) [Concomitant]
  9. ASCORBIC ACID [Concomitant]
  10. ADVAIR DISKUS 100/50 [Concomitant]
  11. ALBUTEROL SULATE [Concomitant]
     Indication: ASTHMA
     Dates: start: 20040101, end: 20070101
  12. ADIPEX [Concomitant]

REACTIONS (1)
  - GALLBLADDER DISORDER [None]
